FAERS Safety Report 20190660 (Version 1)
Quarter: 2021Q4

REPORT INFORMATION
  Report Type: Spontaneous
  Country: US (occurrence: None)
  Receive Date: 20211216
  Receipt Date: 20211216
  Transmission Date: 20220303
  Serious: No
  Sender: FDA-Public Use
  Company Number: 2021A809862

PATIENT
  Sex: Female
  Weight: 53.5 kg

DRUGS (2)
  1. BUDESONIDE\FORMOTEROL FUMARATE DIHYDRATE [Suspect]
     Active Substance: BUDESONIDE\FORMOTEROL FUMARATE DIHYDRATE
     Indication: Therapy change
     Dosage: TWO TIMES A DAY
     Route: 055
     Dates: start: 20211025
  2. SYMBICORT [Suspect]
     Active Substance: BUDESONIDE\FORMOTEROL FUMARATE DIHYDRATE
     Indication: Therapy change
     Dosage: 80/4.5 MCG; TWO TIMES A DAY
     Route: 055

REACTIONS (3)
  - Visual impairment [Unknown]
  - Eye infection [Unknown]
  - Device delivery system issue [Unknown]
